FAERS Safety Report 5547239-X (Version None)
Quarter: 2007Q4

REPORT INFORMATION
  Report Type: 
  Country: None (occurrence: None)
  Receive Date: 20071211
  Receipt Date: 20071205
  Transmission Date: 20080405
  Serious: Yes (Hospitalization)
  Sender: FDA-Public Use
  Company Number: A0697533A

PATIENT
  Age: 56 Year
  Sex: Female

DRUGS (6)
  1. ADVAIR DISKUS 100/50 [Suspect]
     Indication: PNEUMONIA
     Dosage: 1PUFF TWICE PER DAY
     Route: 055
     Dates: start: 20060701, end: 20070101
  2. ZITHROMAX [Concomitant]
  3. SPIRIVA [Concomitant]
  4. ALBUTEROL [Concomitant]
  5. NEBULIZER [Concomitant]
  6. OXYGEN [Concomitant]

REACTIONS (5)
  - BLINDNESS TRANSIENT [None]
  - DYSPNOEA [None]
  - EYE PAIN [None]
  - FACIAL PAIN [None]
  - GLAUCOMA [None]
